FAERS Safety Report 4410663-2 (Version None)
Quarter: 2004Q3

REPORT INFORMATION
  Report Type: 
  Country: None (occurrence: None)
  Receive Date: 20040726
  Receipt Date: 20040712
  Transmission Date: 20050211
  Serious: Yes (Hospitalization)
  Sender: FDA-Public Use
  Company Number: VIS10158.2001

PATIENT
  Age: 76 Year
  Sex: Male

DRUGS (5)
  1. VISICOL [Suspect]
     Indication: COLONOSCOPY
     Dosage: 42 G ONCE PO
     Route: 048
  2. ZESTORETIC [Suspect]
     Indication: HYPERTENSION
  3. ZOCOR [Concomitant]
  4. PROTONIX [Concomitant]
  5. ECOTRIN [Concomitant]

REACTIONS (6)
  - BLOOD PRESSURE DECREASED [None]
  - FATIGUE [None]
  - FLUID INTAKE REDUCED [None]
  - MEDICATION ERROR [None]
  - POST PROCEDURAL COMPLICATION [None]
  - RENAL FAILURE ACUTE [None]
